FAERS Safety Report 21760473 (Version 1)
Quarter: 2022Q4

REPORT INFORMATION
  Report Type: Spontaneous
  Country: US (occurrence: US)
  Receive Date: 20221221
  Receipt Date: 20221221
  Transmission Date: 20230112
  Serious: No
  Sender: FDA-Public Use
  Company Number: US-BEH-2022153214

PATIENT
  Sex: Female
  Weight: 40.363 kg

DRUGS (1)
  1. HIZENTRA [Suspect]
     Active Substance: HUMAN IMMUNOGLOBULIN G
     Indication: Acute lymphocytic leukaemia
     Dosage: 6 GRAM, QOW
     Route: 058
     Dates: start: 202112

REACTIONS (4)
  - Weight increased [Unknown]
  - Ill-defined disorder [Unknown]
  - No adverse event [Unknown]
  - Off label use [Unknown]
